FAERS Safety Report 8493971-8 (Version None)
Quarter: 2012Q3

REPORT INFORMATION
  Report Type: 
  Country: None (occurrence: None)
  Receive Date: 20120709
  Receipt Date: 20120705
  Transmission Date: 20120928
  Serious: Yes (Hospitalization)
  Sender: FDA-Public Use
  Company Number: IT-BAYER-2012-067382

PATIENT
  Age: 76 Year
  Sex: Male

DRUGS (5)
  1. LANSOPRAZOLE [Concomitant]
  2. DEURSIL [Concomitant]
  3. IRBESARTAN AND HYDROCHLOROTHIAZIDE [Concomitant]
  4. ASPIRIN [Suspect]
     Dosage: 100 MG, QD
     Route: 048
     Dates: start: 20100101, end: 20120619
  5. SIMVASTATIN [Concomitant]

REACTIONS (2)
  - SUBDURAL HAEMORRHAGE [None]
  - HEADACHE [None]
